FAERS Safety Report 4978227-X (Version None)
Quarter: 2006Q2

REPORT INFORMATION
  Report Type: 
  Country: None (occurrence: None)
  Receive Date: 20060417
  Receipt Date: 20060404
  Transmission Date: 20061013
  Serious: Yes (Hospitalization)
  Sender: FDA-Public Use
  Company Number: HQWYE726810APR06

PATIENT
  Age: 76 Year
  Sex: Male
  Weight: 60.84 kg

DRUGS (15)
  1. ZOSYN [Suspect]
     Indication: ENTEROCOCCAL BACTERAEMIA
     Dosage: 2.25 G 1X PER 8 HR, INTRAVENOUS
     Route: 042
     Dates: start: 20060223, end: 20060314
  2. CALCITROL (CALCIUM CARBONATE/ERGOCALCIFEROL/RETINOL) [Concomitant]
  3. CARVEDILOL [Concomitant]
  4. OMEPRAZOLE [Concomitant]
  5. LEVOTHYROXINE SODIUM [Concomitant]
  6. FOLIC ACID [Concomitant]
  7. CYANOCOBALAMIN [Concomitant]
  8. LOVASTATIN [Concomitant]
  9. ALBUTEROL (SALBULTAMOL) [Concomitant]
  10. CALCIUM CARBONATE (CALCIUM CARBONATE) [Concomitant]
  11. CORDARONE [Concomitant]
  12. METOLAZONE [Concomitant]
  13. ERTYHROPOIETIN (ERYTHROPOIETIN) [Concomitant]
  14. NITROGLYCERIN ^TIKA^ (GLYECERL TRINITRATE) [Concomitant]
  15. QVAR (BELCOMETASONE DIPROPIONATE) [Concomitant]

REACTIONS (3)
  - CELLULITIS [None]
  - NEUTROPENIA [None]
  - THROMBOCYTOPENIA [None]
